FAERS Safety Report 18477297 (Version 1)
Quarter: 2020Q4

REPORT INFORMATION
  Report Type: Spontaneous
  Country: GB (occurrence: GB)
  Receive Date: 20201107
  Receipt Date: 20201107
  Transmission Date: 20210114
  Serious: Yes (Hospitalization)
  Sender: FDA-Public Use
  Company Number: GB-TEVA-2020-GB-1844989

PATIENT
  Age: 77 Year
  Sex: Female
  Weight: 63.5 kg

DRUGS (7)
  1. LANSOPRAZOLE. [Concomitant]
     Active Substance: LANSOPRAZOLE
     Dosage: 30 MG
  2. BUTEC [Concomitant]
     Active Substance: BUPRENORPHINE
     Dosage: 15 MG
  3. GAVISCON ADVANCE [Concomitant]
     Active Substance: POTASSIUM BICARBONATE\SODIUM ALGINATE
  4. NITROFURANTOIN. [Suspect]
     Active Substance: NITROFURANTOIN
     Indication: URINARY TRACT INFECTION
     Dosage: 50 MILLIGRAM DAILY; AT NIGHT
     Route: 048
     Dates: start: 20200926, end: 20200928
  5. ATENOLOL. [Concomitant]
     Active Substance: ATENOLOL
  6. PENTASA [Concomitant]
     Active Substance: MESALAMINE
     Dosage: 1 GRAM
  7. SAFLUTAN [Concomitant]
     Active Substance: TAFLUPROST
     Dosage: 15 MCG/ML

REACTIONS (10)
  - Pyrexia [Unknown]
  - Pain in extremity [Recovering/Resolving]
  - Headache [Unknown]
  - Decreased appetite [Unknown]
  - Ageusia [Unknown]
  - Nausea [Unknown]
  - Confusional state [Unknown]
  - Dry mouth [Unknown]
  - Chest pain [Unknown]
  - Asthenia [Unknown]

NARRATIVE: CASE EVENT DATE: 20200927
